FAERS Safety Report 10978547 (Version 1)
Quarter: 2015Q2

REPORT INFORMATION
  Report Type: Spontaneous
  Country: TR (occurrence: TR)
  Receive Date: 20150402
  Receipt Date: 20150402
  Transmission Date: 20150821
  Serious: Yes (Other)
  Sender: FDA-Public Use
  Company Number: PHHY2015TR038019

PATIENT
  Age: 11 Day
  Sex: Female

DRUGS (5)
  1. SOTALOL. [Suspect]
     Active Substance: SOTALOL
     Indication: PRODUCT USED FOR UNKNOWN INDICATION
     Dosage: MATERNAL DOSE: 160 MG DAILY
     Route: 064
  2. PROPRANOLOL [Suspect]
     Active Substance: PROPRANOLOL\PROPRANOLOL HYDROCHLORIDE
     Indication: TACHYCARDIA
     Dosage: 3 MG/KG, QD
     Route: 065
  3. AMIODARONE [Suspect]
     Active Substance: AMIODARONE
     Indication: TACHYCARDIA
     Dosage: 10 MG/KG, QD
     Route: 065
  4. DIGOXIN. [Suspect]
     Active Substance: DIGOXIN
     Indication: PRODUCT USED FOR UNKNOWN INDICATION
     Dosage: MATERNAL DOSE: 0.5 MG DAILY
     Route: 064
  5. PROPAFENONE. [Suspect]
     Active Substance: PROPAFENONE
     Indication: TACHYCARDIA
     Dosage: 10 MG/KG, QD
     Route: 065

REACTIONS (4)
  - Treatment failure [Unknown]
  - Supraventricular tachycardia [Recovered/Resolved]
  - Premature baby [Unknown]
  - Foetal exposure during pregnancy [Unknown]
